FAERS Safety Report 7825404-6 (Version None)
Quarter: 2011Q4

REPORT INFORMATION
  Report Type: 
  Country: None (occurrence: None)
  Receive Date: 20111012
  Receipt Date: 20111006
  Transmission Date: 20120403
  Serious: Yes (Other)
  Sender: FDA-Public Use
  Company Number: 2011029989

PATIENT
  Age: 58 Year
  Sex: Female

DRUGS (3)
  1. TRANEXAMIC ACID [Concomitant]
  2. DANAZOL [Concomitant]
  3. BERINERT [Suspect]
     Indication: ANGIOEDEMA
     Dosage: INTRAVENOUS (NOT OTHERWISE SPECIFIED)
     Route: 042

REACTIONS (1)
  - JUGULAR VEIN THROMBOSIS [None]
